FAERS Safety Report 5458150-7 (Version None)
Quarter: 2007Q3

REPORT INFORMATION
  Report Type: 
  Country: None (occurrence: None)
  Receive Date: 20070917
  Receipt Date: 20070911
  Transmission Date: 20080115
  Serious: Yes (Hospitalization)
  Sender: FDA-Public Use
  Company Number: 2007SP017688

PATIENT
  Age: 62 Year
  Sex: Female
  Weight: 57 kg

DRUGS (9)
  1. PEG-INTRON [Suspect]
     Indication: HEPATITIS C
     Dosage: 80 MCG;QW; SC
     Route: 058
     Dates: start: 20070831, end: 20070831
  2. REBETOL [Suspect]
     Indication: HEPATITIS C
     Dosage: 600 MG;QD; PO
     Route: 048
     Dates: start: 20070831, end: 20070831
  3. INDACIN (INDOMETACIN) [Suspect]
     Indication: ANTIPYRESIS
     Dosage: 25 MG; RTL
     Route: 054
     Dates: start: 20070831, end: 20070831
  4. PROMAC [Concomitant]
  5. CONIEL [Concomitant]
  6. DIOVAN [Concomitant]
  7. BISOPROLOL FUMARATE [Concomitant]
  8. AMLODIN OD [Concomitant]
  9. PRAVASTATIN SODIUM [Concomitant]

REACTIONS (2)
  - DYSPHONIA [None]
  - LIP SWELLING [None]
